FAERS Safety Report 23122136 (Version 2)
Quarter: 2024Q1

REPORT INFORMATION
  Report Type: Report from Study
  Country: CA (occurrence: CA)
  Receive Date: 20231030
  Receipt Date: 20240325
  Transmission Date: 20240410
  Serious: Yes (Hospitalization, Other)
  Sender: FDA-Public Use
  Company Number: CA-TAKEDA-2023TUS058641

PATIENT
  Age: 85 Year
  Sex: Female

DRUGS (16)
  1. VEDOLIZUMAB [Suspect]
     Active Substance: VEDOLIZUMAB
     Indication: Crohn^s disease
     Dosage: 300 MILLIGRAM
     Route: 042
     Dates: start: 20230208
  2. COLESEVELAM [Suspect]
     Active Substance: COLESEVELAM
     Indication: Bile acid malabsorption
     Dosage: 625 MILLIGRAM, BID
     Route: 065
  3. IMURAN [Concomitant]
     Active Substance: AZATHIOPRINE
     Indication: Crohn^s disease
     Dosage: 50 MILLIGRAM, QOD
     Dates: start: 20040203
  4. IMURAN [Concomitant]
     Active Substance: AZATHIOPRINE
     Dosage: 25 MILLIGRAM, QOD
     Dates: start: 20040203
  5. FOLIC ACID [Concomitant]
     Active Substance: FOLIC ACID
     Indication: Crohn^s disease
     Dosage: 5 MILLIGRAM, QD
  6. ASPIRIN [Concomitant]
     Active Substance: ASPIRIN
     Indication: Aortic valve replacement
     Dosage: 81 MILLIGRAM, QD
  7. CARBIDOPA\LEVODOPA [Concomitant]
     Active Substance: CARBIDOPA\LEVODOPA
     Indication: Parkinson^s disease
     Dosage: UNK UNK, BID
  8. MYRBETRIQ [Concomitant]
     Active Substance: MIRABEGRON
     Indication: Hypertonic bladder
     Dosage: 50 MILLIGRAM, QD
  9. VITAMIN B12 [Concomitant]
     Active Substance: CYANOCOBALAMIN
     Indication: Crohn^s disease
     Dosage: 10000 MICROGRAM, MONTHLY
  10. EVISTA [Concomitant]
     Active Substance: RALOXIFENE HYDROCHLORIDE
     Indication: Hormone replacement therapy
     Dosage: 60 MILLIGRAM, QD
  11. EVISTA [Concomitant]
     Active Substance: RALOXIFENE HYDROCHLORIDE
     Indication: Osteoporosis
  12. PROLIA [Concomitant]
     Active Substance: DENOSUMAB
     Indication: Osteoporosis
     Dosage: UNK UNK, Q6MONTHS
     Dates: start: 202003
  13. TELMISARTAN [Concomitant]
     Active Substance: TELMISARTAN
     Indication: Blood pressure abnormal
     Dosage: 40 MILLIGRAM, QD
  14. AMLODIPINE BESYLATE [Concomitant]
     Active Substance: AMLODIPINE BESYLATE
     Indication: Blood pressure abnormal
     Dosage: 2.5 MILLIGRAM, QD
  15. POTASSIUM [Concomitant]
     Active Substance: POTASSIUM
     Indication: Crohn^s disease
     Dosage: 600 MILLIGRAM
  16. LUTEIN ZEAXANTHIN [Concomitant]
     Indication: Macular degeneration
     Dosage: UNK UNK, QD

REACTIONS (10)
  - Small intestinal obstruction [Unknown]
  - Uveitis [Unknown]
  - Crohn^s disease [Unknown]
  - Small intestinal stenosis [Unknown]
  - Abdominal tenderness [Unknown]
  - Arthritis [Unknown]
  - Eye haemorrhage [Unknown]
  - Bile acid malabsorption [Unknown]
  - Abdominal pain [Unknown]
  - Flatulence [Unknown]

NARRATIVE: CASE EVENT DATE: 20240317
